FAERS Safety Report 11492868 (Version 1)
Quarter: 2015Q3

REPORT INFORMATION
  Report Type: Spontaneous
  Country: MY (occurrence: MY)
  Receive Date: 20150911
  Receipt Date: 20150911
  Transmission Date: 20151125
  Serious: Yes (Disabling)
  Sender: FDA-Public Use
  Company Number: MY-HOSPIRA-2995567

PATIENT
  Sex: Male

DRUGS (2)
  1. LEVOPHED [Suspect]
     Active Substance: NOREPINEPHRINE BITARTRATE
     Indication: DRUG THERAPY
     Dosage: 6 MCG/KG/MIN (DOSE RANGE 4 MG)
     Route: 042
     Dates: start: 20120518
  2. LEVOPHED [Suspect]
     Active Substance: NOREPINEPHRINE BITARTRATE
     Indication: DRUG THERAPY
     Dosage: 3-6 MCG/KG/MIN
     Route: 042
     Dates: start: 20120518

REACTIONS (1)
  - Skin discolouration [Unknown]

NARRATIVE: CASE EVENT DATE: 20120518
